FAERS Safety Report 4663369-9 (Version None)
Quarter: 2005Q2

REPORT INFORMATION
  Report Type: 
  Country: None (occurrence: None)
  Receive Date: 20050513
  Receipt Date: 20050503
  Transmission Date: 20051028
  Serious: Yes (Hospitalization, Other)
  Sender: FDA-Public Use
  Company Number: 2005070223

PATIENT
  Age: 49 Year
  Sex: Male

DRUGS (1)
  1. CELEBREX [Suspect]
     Indication: BACK PAIN
     Dosage: 200 MG (1 D),ORAL
     Route: 048
     Dates: start: 20020101, end: 20040501

REACTIONS (3)
  - CEREBRAL ISCHAEMIA [None]
  - DIABETES INSIPIDUS [None]
  - DIABETIC KETOACIDOSIS [None]
